FAERS Safety Report 18734963 (Version 1)
Quarter: 2021Q1

REPORT INFORMATION
  Report Type: Report from Study
  Country: NL (occurrence: NL)
  Receive Date: 20210113
  Receipt Date: 20210113
  Transmission Date: 20210419
  Serious: Yes (Death)
  Sender: FDA-Public Use
  Company Number: NVSC2021NL006010

PATIENT
  Sex: Female

DRUGS (2)
  1. ZOMETA [Suspect]
     Active Substance: ZOLEDRONIC ACID
     Dosage: UNK
     Route: 065
     Dates: start: 20191003, end: 20200803
  2. ZOMETA [Suspect]
     Active Substance: ZOLEDRONIC ACID
     Indication: PRODUCT USED FOR UNKNOWN INDICATION
     Dosage: UNK, (4 MG/100ML, 1.00 X PER 12 WEEKS)
     Route: 042
     Dates: start: 20201103

REACTIONS (3)
  - Neoplasm malignant [Fatal]
  - Inappropriate schedule of product administration [Unknown]
  - General physical health deterioration [Fatal]
